FAERS Safety Report 8935724 (Version 2)
Quarter: 2012Q4

REPORT INFORMATION
  Report Type: Report from Study
  Country: JP (occurrence: JP)
  Receive Date: 20121130
  Receipt Date: 20121226
  Transmission Date: 20130627
  Serious: Yes (Hospitalization)
  Sender: FDA-Public Use
  Company Number: JP-SANOFI-AVENTIS-2012SA084899

PATIENT
  Age: 64 Year
  Sex: Male
  Weight: 55.7 kg

DRUGS (14)
  1. CABAZITAXEL [Suspect]
     Indication: PROSTATE CANCER METASTATIC
     Route: 041
     Dates: start: 20120228, end: 20120228
  2. CABAZITAXEL [Suspect]
     Indication: PROSTATE CANCER METASTATIC
     Route: 041
     Dates: start: 20121009, end: 20121009
  3. CABAZITAXEL [Suspect]
     Indication: PROSTATE CANCER METASTATIC
     Route: 041
     Dates: start: 20121101, end: 20121101
  4. PREDNISOLONE [Suspect]
     Indication: PROSTATE CANCER METASTATIC
     Route: 048
     Dates: start: 20120228
  5. CHLORPHENIRAMINE MALEATE [Concomitant]
     Indication: PROPHYLAXIS
     Route: 041
     Dates: start: 20120228, end: 20121101
  6. DEXAMETHASONE SODIUM PHOSPHATE [Concomitant]
     Indication: PROPHYLAXIS
     Route: 042
     Dates: start: 20120228, end: 20121101
  7. FAMOTIDINE [Concomitant]
     Indication: PROPHYLAXIS
     Route: 041
     Dates: start: 20120228, end: 20121101
  8. GOSERELIN ACETATE [Concomitant]
     Route: 065
     Dates: start: 20120413, end: 20121009
  9. URSODEOXYCHOLIC ACID [Concomitant]
     Route: 048
     Dates: start: 20110129
  10. EBASTINE [Concomitant]
     Route: 048
     Dates: start: 20110512
  11. MESNA [Concomitant]
     Route: 041
     Dates: start: 20121009, end: 20121009
  12. LENOGRASTIM [Concomitant]
     Route: 058
     Dates: start: 20120924
  13. BAKTAR [Concomitant]
     Route: 048
     Dates: start: 20120924
  14. UROLOGICALS [Concomitant]
     Route: 048
     Dates: start: 20120724

REACTIONS (1)
  - Cataract cortical [Recovered/Resolved]
